FAERS Safety Report 9121013 (Version 1)
Quarter: 2013Q1

REPORT INFORMATION
  Report Type: Spontaneous
  Country: US (occurrence: US)
  Receive Date: 20130226
  Receipt Date: 20130226
  Transmission Date: 20140127
  Serious: No
  Sender: FDA-Public Use
  Company Number: US-MYLANLABS-2012S1023805

PATIENT
  Age: 76 Year
  Sex: Female

DRUGS (2)
  1. VESICARE [Suspect]
     Route: 048
     Dates: start: 201209
  2. HYDROCHLOROTHIAZIDE [Suspect]

REACTIONS (3)
  - Pollakiuria [Not Recovered/Not Resolved]
  - Polyuria [Not Recovered/Not Resolved]
  - Vision blurred [Recovered/Resolved]
